FAERS Safety Report 25668395 (Version 1)
Quarter: 2025Q3

REPORT INFORMATION
  Report Type: Spontaneous
  Country: EU (occurrence: EU)
  Receive Date: 20250812
  Receipt Date: 20250812
  Transmission Date: 20251020
  Serious: Yes (Hospitalization)
  Sender: ROCHE
  Company Number: EU-ROCHE-10000350184

PATIENT
  Age: 53 Year
  Sex: Female
  Weight: 82 kg

DRUGS (12)
  1. OCRELIZUMAB [Suspect]
     Active Substance: OCRELIZUMAB
     Indication: Multiple sclerosis
     Route: 042
     Dates: start: 20190806
  2. PANTOPRAZOLE [Concomitant]
     Active Substance: PANTOPRAZOLE
  3. Mebeverine Aristo [Concomitant]
  4. CHOLECALCIFEROL [Concomitant]
     Active Substance: CHOLECALCIFEROL
  5. FERROUS GLYCINE SULFATE [Concomitant]
     Active Substance: FERROUS GLYCINE SULFATE
  6. VITAMIN B12 [Concomitant]
     Active Substance: CYANOCOBALAMIN
  7. PROPIVERINE HYDROCHLORIDE [Concomitant]
     Active Substance: PROPIVERINE HYDROCHLORIDE
  8. DALFAMPRIDINE [Concomitant]
     Active Substance: DALFAMPRIDINE
  9. Dekristolvit [Concomitant]
  10. MAGNESIUM [Concomitant]
     Active Substance: MAGNESIUM
  11. LAMOTRIGINE [Concomitant]
     Active Substance: LAMOTRIGINE
  12. DALFAMPRIDINE [Concomitant]
     Active Substance: DALFAMPRIDINE

REACTIONS (4)
  - Lipoedema [Recovered/Resolved]
  - Post-traumatic stress disorder [Recovered/Resolved]
  - Generalised tonic-clonic seizure [Recovered/Resolved]
  - Nervous system disorder [Recovered/Resolved]
